FAERS Safety Report 10267164 (Version 1)
Quarter: 2014Q2

REPORT INFORMATION
  Report Type: Not Available
  Country: FR (occurrence: FR)
  Receive Date: 20140630
  Receipt Date: 20140630
  Transmission Date: 20141212
  Serious: Yes (Life-Threatening)
  Sender: FDA-Public Use
  Company Number: FR-BEH-2014043441

PATIENT
  Age: 54 Year
  Sex: Male

DRUGS (1)
  1. PRIVIGEN [Suspect]
     Indication: AUTOIMMUNE HAEMOLYTIC ANAEMIA
     Route: 042
     Dates: start: 20140606

REACTIONS (4)
  - Anaphylactic shock [Unknown]
  - Haemodynamic instability [Recovered/Resolved]
  - Oxygen saturation decreased [Recovered/Resolved]
  - Rash [Unknown]
